FAERS Safety Report 5453507-2 (Version None)
Quarter: 2007Q3

REPORT INFORMATION
  Report Type: 
  Country: None (occurrence: None)
  Receive Date: 20070913
  Receipt Date: 20070829
  Transmission Date: 20080115
  Serious: Yes (Other)
  Sender: FDA-Public Use
  Company Number: 6071 / 2007S1008187

PATIENT
  Age: 24 Year
  Sex: Female

DRUGS (6)
  1. AMNESTEEM [Suspect]
     Indication: ACNE CYSTIC
     Dosage: 40 MG, QD, PO; 80 MG, QD, PO; 80 MG, QOD, PO; 120 MG, QOD, PO; 120 MG, QD, PO
     Route: 048
     Dates: start: 20070129, end: 20070205
  2. AMNESTEEM [Suspect]
     Indication: ACNE CYSTIC
     Dosage: 40 MG, QD, PO; 80 MG, QD, PO; 80 MG, QOD, PO; 120 MG, QOD, PO; 120 MG, QD, PO
     Route: 048
     Dates: start: 20070206, end: 20070325
  3. AMNESTEEM [Suspect]
     Indication: ACNE CYSTIC
     Dosage: 40 MG, QD, PO; 80 MG, QD, PO; 80 MG, QOD, PO; 120 MG, QOD, PO; 120 MG, QD, PO
     Route: 048
     Dates: start: 20070326, end: 20070424
  4. AMNESTEEM [Suspect]
     Indication: ACNE CYSTIC
     Dosage: 40 MG, QD, PO; 80 MG, QD, PO; 80 MG, QOD, PO; 120 MG, QOD, PO; 120 MG, QD, PO
     Route: 048
     Dates: start: 20070326, end: 20070424
  5. AMNESTEEM [Suspect]
     Indication: ACNE CYSTIC
     Dosage: 40 MG, QD, PO; 80 MG, QD, PO; 80 MG, QOD, PO; 120 MG, QOD, PO; 120 MG, QD, PO
     Route: 048
     Dates: start: 20070425, end: 20070701
  6. ORAL CONTRACEPTIVE [Concomitant]

REACTIONS (12)
  - ACNE CYSTIC [None]
  - CSF PRESSURE INCREASED [None]
  - DIPLOPIA [None]
  - DRUG INEFFECTIVE [None]
  - HEADACHE [None]
  - HYPERVITAMINOSIS [None]
  - INTRACRANIAL HYPOTENSION [None]
  - PAPILLOEDEMA [None]
  - POST LUMBAR PUNCTURE SYNDROME [None]
  - POST PROCEDURAL COMPLICATION [None]
  - SINUSITIS [None]
  - VITAMIN A INCREASED [None]
